FAERS Safety Report 14391534 (Version 2)
Quarter: 2018Q1

REPORT INFORMATION
  Report Type: Report from Study
  Country: US (occurrence: US)
  Receive Date: 20180116
  Receipt Date: 20180130
  Transmission Date: 20180509
  Serious: Yes (Death, Hospitalization)
  Sender: FDA-Public Use
  Company Number: PHEH2018US001242

PATIENT
  Sex: Female
  Weight: 73.6 kg

DRUGS (7)
  1. LISINOPRIL. [Concomitant]
     Active Substance: LISINOPRIL
     Indication: BLOOD PRESSURE ABNORMAL
     Dosage: 1 DF, QD
     Route: 048
     Dates: start: 20171113
  2. METFORMIN [Concomitant]
     Active Substance: METFORMIN HYDROCHLORIDE
     Indication: BLOOD GLUCOSE
     Dosage: 1 DF, QD
     Route: 048
     Dates: start: 20171113
  3. LETROZOLE. [Concomitant]
     Active Substance: LETROZOLE
     Indication: BREAST CANCER
     Dosage: 1 DF, QD
     Route: 048
     Dates: start: 20171113
  4. ATORVASTATIN [Concomitant]
     Active Substance: ATORVASTATIN
     Indication: LIPIDS ABNORMAL
     Dosage: 1 DF, QD
     Route: 048
     Dates: start: 20171113
  5. DAUNORUBICIN [Concomitant]
     Active Substance: DAUNORUBICIN
     Indication: PRODUCT USED FOR UNKNOWN INDICATION
     Route: 065
  6. PROMETHAZINE [Concomitant]
     Active Substance: PROMETHAZINE\PROMETHAZINE HYDROCHLORIDE
     Indication: NAUSEA
     Dosage: 2 DF, Q6H
     Route: 048
     Dates: start: 20171125
  7. RYDAPT [Suspect]
     Active Substance: MIDOSTAURIN
     Indication: ACUTE MYELOID LEUKAEMIA
     Dosage: 25 MG, BID
     Route: 048
     Dates: start: 20171125, end: 20171208

REACTIONS (2)
  - Mucosal inflammation [Unknown]
  - Respiratory failure [Fatal]
